FAERS Safety Report 17769933 (Version 2)
Quarter: 2024Q2

REPORT INFORMATION
  Report Type: Spontaneous
  Country: US (occurrence: US)
  Receive Date: 20200512
  Receipt Date: 20240612
  Transmission Date: 20240716
  Serious: Yes (Death, Other)
  Sender: FDA-Public Use
  Company Number: US-PFIZER INC-2020178608

PATIENT
  Age: 61 Year
  Sex: Female

DRUGS (1)
  1. THROMBIN [Suspect]
     Active Substance: THROMBIN
     Dosage: THROUGH A DIALYSIS ACCESS SITE
     Dates: start: 199812

REACTIONS (2)
  - Incorrect route of product administration [Fatal]
  - Thrombosis [Fatal]

NARRATIVE: CASE EVENT DATE: 19981201
